FAERS Safety Report 5473435-6 (Version None)
Quarter: 2007Q3

REPORT INFORMATION
  Report Type: 
  Country: None (occurrence: None)
  Receive Date: 20070828
  Receipt Date: 20070330
  Transmission Date: 20080115
  Serious: Yes (Other)
  Sender: FDA-Public Use
  Company Number: 07H-163-0312331-00

PATIENT
  Sex: 0

DRUGS (2)
  1. NITROPRESS [Suspect]
     Indication: DRUG USE FOR UNKNOWN INDICATION
     Dosage: 2.6 MCG/KG/MIN, INTRAVENOUS
     Route: 042
     Dates: start: 20060815
  2. CLONIDINE PATCH (CLONIDINE) [Concomitant]

REACTIONS (3)
  - HYPOTENSION [None]
  - MEDICATION ERROR [None]
  - OVERDOSE [None]
